FAERS Safety Report 25219980 (Version 1)
Quarter: 2025Q2

REPORT INFORMATION
  Report Type: Other
  Country: MY (occurrence: MY)
  Receive Date: 20250421
  Receipt Date: 20250421
  Transmission Date: 20250716
  Serious: Yes (Other)
  Sender: APPCO PHARMA LLC
  Company Number: MY-Appco Pharma LLC-2175267

PATIENT

DRUGS (1)
  1. VALGANCICLOVIR [Suspect]
     Active Substance: VALGANCICLOVIR
     Indication: Cytomegalovirus infection

REACTIONS (2)
  - Neutropenia [Unknown]
  - Hepatitis [Unknown]
